FAERS Safety Report 13496510 (Version 1)
Quarter: 2017Q2

REPORT INFORMATION
  Report Type: Report from Study
  Country: US (occurrence: US)
  Receive Date: 20170428
  Receipt Date: 20170428
  Transmission Date: 20170830
  Serious: Yes (Other)
  Sender: FDA-Public Use
  Company Number: US-SAOL THERAPEUTICS-0700064360

PATIENT
  Age: 42 Year
  Sex: Female
  Weight: 103 kg

DRUGS (5)
  1. COMPOUNDED BACLOFEN [Suspect]
     Active Substance: BACLOFEN
     Indication: PAIN
     Dosage: 799.11 ?G, \DAY
     Route: 037
     Dates: start: 20110725
  2. DILAUDID [Suspect]
     Active Substance: HYDROMORPHONE HYDROCHLORIDE
     Dosage: 4.994 MG, \DAY
     Route: 037
     Dates: start: 20110725
  3. CLONIDINE. [Suspect]
     Active Substance: CLONIDINE
     Dosage: 399.56 ?G, \DAY
     Route: 037
     Dates: start: 20110725
  4. BUPIVACAINE. [Suspect]
     Active Substance: BUPIVACAINE
     Dosage: 29.967 MG, \DAY
     Route: 037
     Dates: start: 20110725
  5. DROPERIDOL. [Suspect]
     Active Substance: DROPERIDOL
     Dosage: 124.86 ?G/DL, \DAY
     Route: 037
     Dates: start: 20110725

REACTIONS (2)
  - Hypoaesthesia [Recovered/Resolved]
  - Muscular weakness [Recovered/Resolved]

NARRATIVE: CASE EVENT DATE: 20110725
